FAERS Safety Report 8474040-X (Version None)
Quarter: 2012Q2

REPORT INFORMATION
  Report Type: 
  Country: None (occurrence: None)
  Receive Date: 20120628
  Receipt Date: 20120419
  Transmission Date: 20120825
  Serious: Yes (Other)
  Sender: FDA-Public Use
  Company Number: US-MYLANLABS-2012S1008192

PATIENT
  Age: 16 Year
  Sex: Female

DRUGS (8)
  1. OMEPRAZOLE [Concomitant]
     Route: 048
  2. SEPTRA DS [Concomitant]
     Dosage: FOR 10 DAYS
     Route: 048
     Dates: start: 20120411
  3. MIRALAX /00754501/ [Concomitant]
  4. CLOZAPINE [Suspect]
     Dosage: 25MG QAM, 50MG HS
     Route: 048
     Dates: end: 20120413
  5. VYVANSE [Concomitant]
     Route: 048
  6. RANITIDINE [Concomitant]
     Route: 048
  7. DEPAKOTE ER [Concomitant]
     Route: 048
  8. PRAZOSIN [Concomitant]
     Route: 048

REACTIONS (1)
  - GRANULOCYTOPENIA [None]
